FAERS Safety Report 7534651-2 (Version None)
Quarter: 2011Q2

REPORT INFORMATION
  Report Type: 
  Country: None (occurrence: None)
  Receive Date: 20110609
  Receipt Date: 20110322
  Transmission Date: 20111010
  Serious: Yes (Hospitalization, Other)
  Sender: FDA-Public Use
  Company Number: PHHO2008US08820

PATIENT
  Sex: Female
  Weight: 74.1 kg

DRUGS (8)
  1. LIPITOR [Concomitant]
  2. NAMENDA [Concomitant]
  3. BLINDED NO TREATMENT RECEIVED [Suspect]
     Indication: DEMENTIA ALZHEIMER'S TYPE
     Dosage: 18 MG, UNK
     Route: 062
     Dates: start: 20080128, end: 20080630
  4. ACTONEL [Concomitant]
  5. EXELON [Suspect]
     Indication: DEMENTIA ALZHEIMER'S TYPE
     Dosage: 18 MG, UNK
     Route: 062
     Dates: start: 20080128, end: 20080630
  6. ASPIRIN [Concomitant]
  7. ATENOLOL [Concomitant]
  8. DIOVAN [Concomitant]

REACTIONS (11)
  - HYPERTENSION [None]
  - ACTIVITIES OF DAILY LIVING IMPAIRED [None]
  - DIARRHOEA [None]
  - AMNESIA [None]
  - SINUS BRADYCARDIA [None]
  - DEMENTIA ALZHEIMER'S TYPE [None]
  - URINARY TRACT INFECTION [None]
  - SYNCOPE [None]
  - ATELECTASIS [None]
  - COGNITIVE DISORDER [None]
  - FALL [None]
